FAERS Safety Report 18558965 (Version 1)
Quarter: 2020Q4

REPORT INFORMATION
  Report Type: Spontaneous
  Country: GB (occurrence: GB)
  Receive Date: 20201130
  Receipt Date: 20201130
  Transmission Date: 20210114
  Serious: Yes (Death, Hospitalization)
  Sender: FDA-Public Use
  Company Number: GB-ABBVIE-20K-167-3670493-00

PATIENT
  Age: 75 Year
  Sex: Female
  Weight: 60 kg

DRUGS (3)
  1. IMBRUVICA [Suspect]
     Active Substance: IBRUTINIB
     Indication: CHRONIC LYMPHOCYTIC LEUKAEMIA
  2. IMBRUVICA [Suspect]
     Active Substance: IBRUTINIB
     Indication: CHRONIC LYMPHOCYTIC LEUKAEMIA
     Route: 048
     Dates: start: 20201104, end: 20201104
  3. ETANERCEPT [Concomitant]
     Active Substance: ETANERCEPT
     Indication: RHEUMATOID ARTHRITIS

REACTIONS (9)
  - Myocardial infarction [Not Recovered/Not Resolved]
  - Hypoxia [Unknown]
  - Renal impairment [Not Recovered/Not Resolved]
  - Wheezing [Unknown]
  - Respiratory distress [Not Recovered/Not Resolved]
  - Metabolic acidosis [Unknown]
  - Haemodynamic instability [Unknown]
  - Cardiogenic shock [Fatal]
  - Dyspnoea [Unknown]

NARRATIVE: CASE EVENT DATE: 20201104
